FAERS Safety Report 5253817-8 (Version None)
Quarter: 2007Q1

REPORT INFORMATION
  Report Type: 
  Country: None (occurrence: None)
  Receive Date: 20070301
  Receipt Date: 20070222
  Transmission Date: 20070707
  Serious: Yes (Hospitalization, Other)
  Sender: FDA-Public Use
  Company Number: JP-ABBOTT-03P-087-0226161-00

PATIENT
  Sex: Male

DRUGS (12)
  1. KALETRA [Suspect]
     Indication: HIV INFECTION
     Route: 048
     Dates: start: 20021226, end: 20050504
  2. KALETRA [Suspect]
     Route: 048
     Dates: start: 20050510, end: 20060119
  3. AVACAVIR SULFATE [Suspect]
     Indication: HIV INFECTION
     Route: 048
     Dates: start: 20020401, end: 20020409
  4. AMPRENAVIR [Suspect]
     Indication: HIV INFECTION
     Route: 048
     Dates: start: 20020401, end: 20020409
  5. NEVIRAPINE [Suspect]
     Indication: HIV INFECTION
     Route: 048
     Dates: start: 20021225, end: 20030103
  6. NEVIRAPINE [Suspect]
     Route: 048
     Dates: start: 20030109, end: 20050504
  7. NEVIRAPINE [Suspect]
     Route: 048
     Dates: start: 20050510, end: 20060105
  8. TENOFOVIR DISOPROXIL FUMARATE [Suspect]
     Indication: HIV INFECTION
     Route: 048
     Dates: start: 20021226, end: 20050504
  9. TENOFOVIR DISOPROXIL FUMARATE [Suspect]
     Route: 048
     Dates: start: 20050510, end: 20060119
  10. NELFINAVIR [Suspect]
     Indication: HIV INFECTION
     Route: 048
     Dates: start: 20020401, end: 20020409
  11. TRIAZOLAM [Suspect]
     Indication: DRUG USE FOR UNKNOWN INDICATION
     Route: 048
     Dates: start: 20050101, end: 20050401
  12. BLOTIZOLAM [Concomitant]
     Indication: DRUG DEPENDENCE
     Route: 048
     Dates: start: 20020401, end: 20030407

REACTIONS (12)
  - ABDOMINAL DISTENSION [None]
  - ABDOMINAL PAIN [None]
  - BLOOD CHOLESTEROL INCREASED [None]
  - BLOOD CREATINE PHOSPHOKINASE INCREASED [None]
  - BLOOD TRIGLYCERIDES INCREASED [None]
  - CONVULSION [None]
  - DIARRHOEA [None]
  - HEADACHE [None]
  - LIPODYSTROPHY ACQUIRED [None]
  - MEMORY IMPAIRMENT [None]
  - NAUSEA [None]
  - OVERDOSE [None]
